FAERS Safety Report 21826358 (Version 9)
Quarter: 2023Q2

REPORT INFORMATION
  Report Type: Report from Study
  Country: CN (occurrence: None)
  Receive Date: 20230106
  Receipt Date: 20230517
  Transmission Date: 20230721
  Serious: Yes (Hospitalization)
  Sender: FDA-Public Use
  Company Number: CN-ROCHE-3255057

PATIENT
  Age: 67 Year
  Sex: Female
  Weight: 61 kg

DRUGS (72)
  1. ATEZOLIZUMAB [Suspect]
     Active Substance: ATEZOLIZUMAB
     Indication: Non-small cell lung cancer metastatic
     Dosage: ON 08/FEB/2022, 19-OCT-2022, 09/NOV/2022, RECEIVED MOST RECENT DOSE OF ATEZOLIZUMAB PRIOR TO AE (ADV
     Route: 041
     Dates: start: 20220118
  2. BEVACIZUMAB [Suspect]
     Active Substance: BEVACIZUMAB
     Indication: Non-small cell lung cancer metastatic
     Dosage: ON 08/FEB/2022, 19-OCT-2022, 09/NOV/2022, RECEIVED MOST RECENT DOSE 1005 MG OF BEVACIZUMAB PRIOR TO
     Route: 042
     Dates: start: 20220118
  3. CARBOPLATIN [Suspect]
     Active Substance: CARBOPLATIN
     Indication: Non-small cell lung cancer metastatic
     Dosage: ON 08/FEB/2022  RECEIVED MOST RECENT DOSE 620 MG PRIOR TO AE, 22/MAR/2022, RECEIVED MOST RECENT DOSE
     Route: 042
     Dates: start: 20220118
  4. PEMETREXED [Suspect]
     Active Substance: PEMETREXED
     Indication: Non-small cell lung cancer metastatic
     Dosage: ON 08/FEB/2022, 19-OCT-2022, RECEIVED MOST RECENT DOSE 850 MG OF PEMETREXED PRIOR TO AE, 09/NOV/2022
     Route: 042
     Dates: start: 20220118
  5. HERBALS\SMILAX CHINA ROOT [Concomitant]
     Active Substance: HERBALS\SMILAX CHINA ROOT
     Indication: Decreased appetite
     Dosage: GIVEN FOR PROPHYLAXIS IS YES ;ONGOING: NO
     Route: 065
     Dates: start: 20220823
  6. AMLODIPINE [Concomitant]
     Active Substance: AMLODIPINE BESYLATE
     Indication: Hypotension
     Dosage: YES
     Route: 065
  7. ACARBOSE [Concomitant]
     Active Substance: ACARBOSE
     Indication: Type 2 diabetes mellitus
     Dosage: YES
     Route: 065
  8. METFORMIN HYDROCHLORIDE [Concomitant]
     Active Substance: METFORMIN HYDROCHLORIDE
     Indication: Type 2 diabetes mellitus
     Dosage: GIVEN FOR PROPHYLAXIS IS YES ;ONGOING: YES
     Route: 065
     Dates: start: 20220103
  9. FOLIC ACID [Concomitant]
     Active Substance: FOLIC ACID
     Dosage: YES
     Route: 065
     Dates: start: 20211227
  10. ASTRAGALUS PROPINQUUS ROOT\HERBALS [Concomitant]
     Active Substance: ASTRAGALUS PROPINQUUS ROOT\HERBALS
     Indication: Decreased appetite
     Dosage: YES
     Route: 065
     Dates: start: 20220823
  11. WA LENG ZI [Concomitant]
     Indication: Decreased appetite
     Dosage: YES
     Route: 065
     Dates: start: 20220823, end: 20220907
  12. ATRACTYLODES MACROCEPHALA [Concomitant]
     Indication: Decreased appetite
     Dosage: YES
     Route: 065
     Dates: start: 20220823
  13. JI NEI JIN [Concomitant]
     Indication: Decreased appetite
     Dosage: YES
     Route: 065
     Dates: start: 20220823, end: 20220907
  14. PSEUDOSTELLARIA HETEROPHYLLA [Concomitant]
     Indication: Decreased appetite
     Dosage: YES
     Route: 065
     Dates: start: 20220823
  15. HERBALS [Concomitant]
     Active Substance: HERBALS
     Indication: Decreased appetite
     Dosage: YES
     Route: 065
     Dates: start: 20220823
  16. FRUCTUS CORNI [Concomitant]
     Indication: Decreased appetite
     Dosage: YES
     Route: 065
     Dates: start: 20220823
  17. LILY [Concomitant]
     Indication: Decreased appetite
     Dosage: YES
     Route: 065
     Dates: start: 20220823
  18. TROPISETRON HYDROCHLORIDE [Concomitant]
     Active Substance: TROPISETRON HYDROCHLORIDE
     Route: 065
     Dates: start: 20221109, end: 20221109
  19. TROPISETRON HYDROCHLORIDE [Concomitant]
     Active Substance: TROPISETRON HYDROCHLORIDE
     Route: 065
     Dates: start: 20220208, end: 20220208
  20. TROPISETRON HYDROCHLORIDE [Concomitant]
     Active Substance: TROPISETRON HYDROCHLORIDE
     Route: 065
     Dates: start: 20220301, end: 20220301
  21. TROPISETRON HYDROCHLORIDE [Concomitant]
     Active Substance: TROPISETRON HYDROCHLORIDE
     Route: 065
     Dates: start: 20220322, end: 20220322
  22. TROPISETRON HYDROCHLORIDE [Concomitant]
     Active Substance: TROPISETRON HYDROCHLORIDE
     Route: 065
     Dates: start: 20220412, end: 20220412
  23. TROPISETRON HYDROCHLORIDE [Concomitant]
     Active Substance: TROPISETRON HYDROCHLORIDE
     Route: 065
     Dates: start: 20220526, end: 20220526
  24. TROPISETRON HYDROCHLORIDE [Concomitant]
     Active Substance: TROPISETRON HYDROCHLORIDE
     Route: 065
     Dates: start: 20220614, end: 20220614
  25. TROPISETRON HYDROCHLORIDE [Concomitant]
     Active Substance: TROPISETRON HYDROCHLORIDE
     Route: 065
     Dates: start: 20220705, end: 20220705
  26. TROPISETRON HYDROCHLORIDE [Concomitant]
     Active Substance: TROPISETRON HYDROCHLORIDE
     Route: 065
     Dates: start: 20220726, end: 20220726
  27. TROPISETRON HYDROCHLORIDE [Concomitant]
     Active Substance: TROPISETRON HYDROCHLORIDE
     Route: 065
     Dates: start: 20220816, end: 20220816
  28. TROPISETRON HYDROCHLORIDE [Concomitant]
     Active Substance: TROPISETRON HYDROCHLORIDE
     Route: 065
     Dates: start: 20220906, end: 20220906
  29. TROPISETRON HYDROCHLORIDE [Concomitant]
     Active Substance: TROPISETRON HYDROCHLORIDE
     Route: 065
     Dates: start: 20220927, end: 20220927
  30. TROPISETRON HYDROCHLORIDE [Concomitant]
     Active Substance: TROPISETRON HYDROCHLORIDE
     Route: 065
     Dates: start: 20221019, end: 20221019
  31. DEXAMETHASONE ACETATE [Concomitant]
     Active Substance: DEXAMETHASONE ACETATE
     Route: 048
     Dates: start: 20221108, end: 20221110
  32. DEXAMETHASONE ACETATE [Concomitant]
     Active Substance: DEXAMETHASONE ACETATE
     Route: 048
     Dates: start: 20220207, end: 20220209
  33. DEXAMETHASONE ACETATE [Concomitant]
     Active Substance: DEXAMETHASONE ACETATE
     Route: 048
     Dates: start: 20220228, end: 20220302
  34. DEXAMETHASONE ACETATE [Concomitant]
     Active Substance: DEXAMETHASONE ACETATE
     Route: 048
     Dates: start: 20220321, end: 20220323
  35. DEXAMETHASONE ACETATE [Concomitant]
     Active Substance: DEXAMETHASONE ACETATE
     Route: 048
     Dates: start: 20220411, end: 20220413
  36. DEXAMETHASONE ACETATE [Concomitant]
     Active Substance: DEXAMETHASONE ACETATE
     Route: 048
     Dates: start: 20220505, end: 20220507
  37. DEXAMETHASONE ACETATE [Concomitant]
     Active Substance: DEXAMETHASONE ACETATE
     Route: 048
     Dates: start: 20220525, end: 20220527
  38. DEXAMETHASONE ACETATE [Concomitant]
     Active Substance: DEXAMETHASONE ACETATE
     Route: 048
     Dates: start: 20220613, end: 20220615
  39. DEXAMETHASONE ACETATE [Concomitant]
     Active Substance: DEXAMETHASONE ACETATE
     Route: 048
     Dates: start: 20220705, end: 20220707
  40. DEXAMETHASONE ACETATE [Concomitant]
     Active Substance: DEXAMETHASONE ACETATE
     Route: 048
     Dates: start: 20220725, end: 20220725
  41. DEXAMETHASONE ACETATE [Concomitant]
     Active Substance: DEXAMETHASONE ACETATE
     Route: 048
     Dates: start: 20220816, end: 20220818
  42. DEXAMETHASONE ACETATE [Concomitant]
     Active Substance: DEXAMETHASONE ACETATE
     Route: 048
     Dates: start: 20220905, end: 20220907
  43. DEXAMETHASONE ACETATE [Concomitant]
     Active Substance: DEXAMETHASONE ACETATE
     Route: 048
     Dates: start: 20220926, end: 20220928
  44. DEXAMETHASONE ACETATE [Concomitant]
     Active Substance: DEXAMETHASONE ACETATE
     Route: 048
     Dates: start: 20220918, end: 20221020
  45. LEVOFLOXACIN HYDROCHLORIDE [Concomitant]
     Active Substance: LEVOFLOXACIN HYDROCHLORIDE
     Indication: Urinary tract infection
     Route: 065
     Dates: start: 20221127
  46. LEVOFLOXACIN HYDROCHLORIDE [Concomitant]
     Active Substance: LEVOFLOXACIN HYDROCHLORIDE
     Route: 065
     Dates: start: 20221109, end: 20221112
  47. VITAMIN B12 [Concomitant]
     Active Substance: CYANOCOBALAMIN
     Dates: start: 20220322, end: 20220322
  48. VITAMIN B12 [Concomitant]
     Active Substance: CYANOCOBALAMIN
     Dates: start: 20221019, end: 20221019
  49. VITAMIN B12 [Concomitant]
     Active Substance: CYANOCOBALAMIN
     Dates: start: 20220816, end: 20220816
  50. VITAMIN B12 [Concomitant]
     Active Substance: CYANOCOBALAMIN
     Dates: start: 20220526, end: 20220526
  51. DEXAMETHASONE SODIUM PHOSPHATE [Concomitant]
     Active Substance: DEXAMETHASONE SODIUM PHOSPHATE
     Route: 042
     Dates: start: 20220322, end: 20220322
  52. DEXAMETHASONE SODIUM PHOSPHATE [Concomitant]
     Active Substance: DEXAMETHASONE SODIUM PHOSPHATE
     Route: 042
     Dates: start: 20220506, end: 20220506
  53. ONDANSETRON HYDROCHLORIDE [Concomitant]
     Active Substance: ONDANSETRON HYDROCHLORIDE
     Dates: start: 20220506, end: 20220506
  54. HUANG QI [Concomitant]
     Indication: Decreased appetite
     Dates: start: 20220823, end: 20220907
  55. TAIZISHEN [Concomitant]
     Indication: Decreased appetite
     Dates: start: 20220823, end: 20220907
  56. CHENPI [Concomitant]
     Indication: Decreased appetite
     Dates: start: 20220823, end: 20220907
  57. DAN SHEN [Concomitant]
     Indication: Decreased appetite
     Dates: start: 20220823, end: 20220907
  58. SPIRONOLACTONE [Concomitant]
     Active Substance: SPIRONOLACTONE
     Indication: Urinary tract infection
     Dates: start: 20220620, end: 202207
  59. GLUTATHIONE [Concomitant]
     Active Substance: GLUTATHIONE
     Dates: start: 20221230, end: 20230109
  60. INSULIN NOS [Concomitant]
     Active Substance: INSULIN NOS
     Indication: Hypoglycaemia
     Dates: start: 20221230, end: 20230101
  61. INSULIN NOS [Concomitant]
     Active Substance: INSULIN NOS
     Dates: start: 20230102, end: 20230109
  62. SODIUM POTASSIUM AND GLUCOSE [Concomitant]
     Dates: start: 20221229, end: 20221229
  63. POTASSIUM CHLORIDE [Concomitant]
     Active Substance: POTASSIUM CHLORIDE
     Dates: start: 20221229, end: 20221229
  64. SODIUM CHLORIDE [Concomitant]
     Active Substance: SODIUM CHLORIDE
     Dates: start: 20221229, end: 20221229
  65. ALPRAZOLAM [Concomitant]
     Active Substance: ALPRAZOLAM
     Dates: start: 20221229, end: 20221229
  66. SPIRONOLACTONE [Concomitant]
     Active Substance: SPIRONOLACTONE
     Indication: Polyuria
     Dates: start: 20221230
  67. METOPROLOL TARTRATE [Concomitant]
     Active Substance: METOPROLOL TARTRATE
     Dates: start: 20221230, end: 20230108
  68. ERYTHROPOIETIN [Concomitant]
     Active Substance: ERYTHROPOIETIN
     Indication: Anaemia
     Dates: start: 20221230, end: 20221230
  69. ERYTHROPOIETIN [Concomitant]
     Active Substance: ERYTHROPOIETIN
     Dates: start: 20230103, end: 20230103
  70. SANJIN WATERMELON FROST [Concomitant]
     Indication: Urinary tract infection
     Dates: start: 20221231, end: 20230113
  71. ALBUMIN HUMAN [Concomitant]
     Active Substance: ALBUMIN HUMAN
     Dates: start: 20230104, end: 20230105
  72. FUROSEMIDE [Concomitant]
     Active Substance: FUROSEMIDE
     Indication: Polyuria
     Dates: start: 20230104, end: 20230105

REACTIONS (2)
  - Anaemia [Not Recovered/Not Resolved]
  - Tubulointerstitial nephritis [Not Recovered/Not Resolved]

NARRATIVE: CASE EVENT DATE: 20220228
